FAERS Safety Report 5308560-3 (Version None)
Quarter: 2007Q2

REPORT INFORMATION
  Report Type: 
  Country: None (occurrence: None)
  Receive Date: 20070420
  Receipt Date: 20070411
  Transmission Date: 20071010
  Serious: Yes (Life-Threatening, Hospitalization)
  Sender: FDA-Public Use
  Company Number: GXKR2007GB03372

PATIENT
  Age: 60 Year
  Sex: Female
  Weight: 80 kg

DRUGS (4)
  1. BISOPROLOL FUMARATE [Suspect]
     Indication: HYPERTENSION
     Dosage: 2.5 MG, ORAL
     Route: 048
     Dates: end: 20070323
  2. BENDROFLUAZIDE (BENDROFLUMETHIAZIDE) [Concomitant]
  3. LERCANIDIPINE [Concomitant]
  4. RAMIPRIL (RAMIPIL) [Concomitant]

REACTIONS (4)
  - BRONCHOSPASM [None]
  - DYSPNOEA [None]
  - PULMONARY OEDEMA [None]
  - WHEEZING [None]
